FAERS Safety Report 8495753-X (Version None)
Quarter: 2012Q2

REPORT INFORMATION
  Report Type: 
  Country: None (occurrence: None)
  Receive Date: 20120405
  Receipt Date: 20091210
  Transmission Date: 20120825
  Serious: Yes (Other)
  Sender: FDA-Public Use
  Company Number: PHEH2009US16496

PATIENT
  Age: 47 Year
  Sex: Female
  Weight: 49.9 kg

DRUGS (3)
  1. RECLAST [Suspect]
     Indication: OSTEOPOROSIS
     Dosage: UNK, ONCE/SINGLE, INTRAVENOUS
     Route: 042
     Dates: start: 20090101, end: 20090101
  2. SYNTHROID [Concomitant]
  3. TIMOLOL MALEATE [Concomitant]

REACTIONS (6)
  - BACK PAIN [None]
  - BONE FORMATION INCREASED [None]
  - HEADACHE [None]
  - NECK PAIN [None]
  - BONE PAIN [None]
  - ARTHRITIS [None]
